FAERS Safety Report 6878960-9 (Version None)
Quarter: 2010Q3

REPORT INFORMATION
  Report Type: 
  Country: None (occurrence: None)
  Receive Date: 20100728
  Receipt Date: 20100716
  Transmission Date: 20110219
  Serious: Yes (Hospitalization)
  Sender: FDA-Public Use
  Company Number: AU-WATSON-2010-09641

PATIENT
  Age: 58 Year
  Sex: Female

DRUGS (4)
  1. FLUOROURACIL [Suspect]
     Indication: COLON CANCER
     Dosage: 400 MG/M2, EVERY 2 WEEKS
     Route: 040
  2. FLUOROURACIL [Suspect]
     Dosage: 2400 MG/M2, 46-H INFUSION, EVERY 2 WEEKS
  3. OXALIPLATIN [Concomitant]
     Indication: COLON CANCER
     Dosage: 85 MG/M2, DAILY (DAY 1)
     Route: 042
  4. FOLINIC ACID [Concomitant]
     Indication: COLON CANCER
     Dosage: 20 MG/M2, DAILY (DAY 1)
     Route: 042

REACTIONS (1)
  - CARDIOMYOPATHY [None]
